FAERS Safety Report 5230801-1 (Version None)
Quarter: 2007Q1

REPORT INFORMATION
  Report Type: 
  Country: None (occurrence: None)
  Receive Date: 20070202
  Receipt Date: 20070118
  Transmission Date: 20070707
  Serious: Yes (Hospitalization)
  Sender: FDA-Public Use
  Company Number: 2007AL000281

PATIENT
  Age: 40 Year
  Sex: Male

DRUGS (1)
  1. TRAMADOL HCL [Suspect]
     Indication: PAIN
     Dosage: PO
     Route: 048

REACTIONS (8)
  - ABDOMINAL WALL DISORDER [None]
  - ABNORMAL DREAMS [None]
  - ATRIAL FIBRILLATION [None]
  - BUNDLE BRANCH BLOCK LEFT [None]
  - CONSTIPATION [None]
  - PALPITATIONS [None]
  - POLLAKIURIA [None]
  - TREMOR [None]
